FAERS Safety Report 7091698-0 (Version None)
Quarter: 2010Q4

REPORT INFORMATION
  Report Type: 
  Country: None (occurrence: None)
  Receive Date: 20101109
  Receipt Date: 20090511
  Transmission Date: 20110411
  Serious: No
  Sender: FDA-Public Use
  Company Number: US-KINGPHARMUSA00001-K200900573

PATIENT

DRUGS (1)
  1. EPIPEN [Suspect]
     Dosage: UNK, SINGLE
     Route: 030

REACTIONS (3)
  - GAIT DISTURBANCE [None]
  - INJECTION SITE HAEMATOMA [None]
  - INJECTION SITE PAIN [None]
